FAERS Safety Report 4473938-7 (Version None)
Quarter: 2004Q4

REPORT INFORMATION
  Report Type: 
  Country: None (occurrence: None)
  Receive Date: 20041013
  Receipt Date: 20041001
  Transmission Date: 20050328
  Serious: Yes (Other)
  Sender: FDA-Public Use
  Company Number: 200110-0688

PATIENT
  Age: 10 Year
  Sex: Female

DRUGS (1)
  1. LISTERINE ANTISEPTIC MOUTHWASH (EUCALYPTOL, MENTHOL, METHYL SALICYLATE [Suspect]
     Indication: DENTAL CARE
     Dosage: MOUTHFUL 2 OR MORE TIMES PER DAY PRN, ORAL TOPICAL
     Route: 048

REACTIONS (2)
  - SKIN CANCER [None]
  - TOOTH DISCOLOURATION [None]
